FAERS Safety Report 13521911 (Version 1)
Quarter: 2017Q2

REPORT INFORMATION
  Report Type: Spontaneous
  Country: US (occurrence: US)
  Receive Date: 20170505
  Receipt Date: 20170505
  Transmission Date: 20170830
  Serious: Yes (Other)
  Sender: FDA-Public Use
  Company Number: None

PATIENT
  Age: 31 Year
  Sex: Female

DRUGS (1)
  1. LUPRON DEPOT [Suspect]
     Active Substance: LEUPROLIDE ACETATE
     Indication: ENDOMETRIOSIS
     Route: 030
     Dates: start: 20170224

REACTIONS (5)
  - Pain in extremity [None]
  - Abdominal pain upper [None]
  - Nerve compression [None]
  - Nausea [None]
  - Muscular weakness [None]

NARRATIVE: CASE EVENT DATE: 20170504
